FAERS Safety Report 17151676 (Version 1)
Quarter: 2019Q4

REPORT INFORMATION
  Report Type: Report from Study
  Country: CA (occurrence: CA)
  Receive Date: 20191213
  Receipt Date: 20191213
  Transmission Date: 20200122
  Serious: Yes (Death, Other)
  Sender: FDA-Public Use
  Company Number: CA-BRISTOL-MYERS SQUIBB COMPANY-BMS-2019-118805

PATIENT
  Age: 48 Year
  Sex: Male

DRUGS (2)
  1. YERVOY [Suspect]
     Active Substance: IPILIMUMAB
     Indication: GASTROINTESTINAL CARCINOMA
     Dosage: 217 MILLIGRAM, Q3WK
     Route: 042
     Dates: start: 20191128
  2. NIVOLUMAB [Suspect]
     Active Substance: NIVOLUMAB
     Indication: GASTROINTESTINAL CARCINOMA
     Dosage: 72 MILLIGRAM, Q3WK
     Route: 042
     Dates: start: 20191128

REACTIONS (3)
  - Prescribed overdose [Unknown]
  - Intentional product use issue [Unknown]
  - Death [Fatal]

NARRATIVE: CASE EVENT DATE: 20191208
